FAERS Safety Report 17811749 (Version 1)
Quarter: 2020Q2

REPORT INFORMATION
  Report Type: Spontaneous
  Country: US (occurrence: US)
  Receive Date: 20200520
  Receipt Date: 20200520
  Transmission Date: 20200714
  Serious: Yes (Hospitalization)
  Sender: FDA-Public Use
  Company Number: None

PATIENT
  Age: 64 Year
  Sex: Male
  Weight: 154 kg

DRUGS (1)
  1. APIXABAN (APIXABAN 5MG TAB) [Suspect]
     Active Substance: APIXABAN
     Indication: ATRIAL FIBRILLATION
     Route: 048
     Dates: start: 20190813

REACTIONS (5)
  - Blindness [None]
  - Transient ischaemic attack [None]
  - Haemorrhagic stroke [None]
  - Sinus bradycardia [None]
  - Therapy interrupted [None]

NARRATIVE: CASE EVENT DATE: 20191008
